FAERS Safety Report 5201280-5 (Version None)
Quarter: 2007Q1

REPORT INFORMATION
  Report Type: 
  Country: None (occurrence: None)
  Receive Date: 20070104
  Receipt Date: 20061220
  Transmission Date: 20070707
  Serious: Yes (Death)
  Sender: FDA-Public Use
  Company Number: 2006-152235-NL

PATIENT
  Age: 47 Year
  Sex: 0

DRUGS (3)
  1. MIRTAZAPINE [Suspect]
  2. VALPROIC ACID [Suspect]
  3. TRAZODONE HCL [Suspect]
     Dosage: ORAL
     Route: 048

REACTIONS (2)
  - COMPLETED SUICIDE [None]
  - MULTIPLE DRUG OVERDOSE INTENTIONAL [None]
